FAERS Safety Report 21298985 (Version 2)
Quarter: 2022Q3

REPORT INFORMATION
  Report Type: Spontaneous
  Country: US (occurrence: US)
  Receive Date: 20220906
  Receipt Date: 20220926
  Transmission Date: 20221027
  Serious: Yes (Other)
  Sender: FDA-Public Use
  Company Number: US-PFIZER INC-PV202200055146

PATIENT
  Age: 75 Year
  Sex: Female

DRUGS (2)
  1. IBRANCE [Suspect]
     Active Substance: PALBOCICLIB
     Indication: Liposarcoma
     Dosage: 125 MG
     Route: 048
     Dates: end: 20220824
  2. IBRANCE [Suspect]
     Active Substance: PALBOCICLIB
     Dosage: 75 MG
     Dates: start: 2022

REACTIONS (8)
  - Neutropenia [Unknown]
  - Off label use [Unknown]
  - Rash [Unknown]
  - Nausea [Unknown]
  - Malaise [Unknown]
  - Oral mucosal eruption [Not Recovered/Not Resolved]
  - White blood cell count decreased [Unknown]
  - Oral herpes [Not Recovered/Not Resolved]

NARRATIVE: CASE EVENT DATE: 20220101
